FAERS Safety Report 19267992 (Version 1)
Quarter: 2021Q2

REPORT INFORMATION
  Report Type: Spontaneous
  Country: CA (occurrence: CA)
  Receive Date: 20210517
  Receipt Date: 20210517
  Transmission Date: 20210717
  Serious: Yes (Other)
  Sender: FDA-Public Use
  Company Number: CA-REGENERON PHARMACEUTICALS, INC.-2021-51161

PATIENT

DRUGS (1)
  1. EYLEA [Suspect]
     Active Substance: AFLIBERCEPT
     Indication: NEOVASCULAR AGE-RELATED MACULAR DEGENERATION
     Dosage: UNK, 5?6 POD

REACTIONS (5)
  - Eye inflammation [Recovering/Resolving]
  - Vitreous disorder [Unknown]
  - Vision blurred [Unknown]
  - Blindness [Recovered/Resolved]
  - Ocular vasculitis [Unknown]

NARRATIVE: CASE EVENT DATE: 2021
